FAERS Safety Report 5251776-5 (Version None)
Quarter: 2007Q1

REPORT INFORMATION
  Report Type: 
  Country: None (occurrence: None)
  Receive Date: 20070228
  Receipt Date: 20070222
  Transmission Date: 20070707
  Serious: Yes (Other)
  Sender: FDA-Public Use
  Company Number: IE-SHR-IE-2007-006196

PATIENT
  Age: 52 Year
  Sex: Female
  Weight: 70 kg

DRUGS (3)
  1. MIRENA [Suspect]
     Indication: CONTRACEPTION
     Dosage: 20 A?G/DAY, CONT
     Route: 015
     Dates: start: 20050101, end: 20070201
  2. LUSTRAL [Concomitant]
     Indication: STRESS
     Dosage: 50 MG, UNK
     Dates: start: 20050801
  3. PANTOPRAZOLE SODIUM [Concomitant]
     Indication: DYSPEPSIA
     Dosage: 40 MG, AS REQ'D

REACTIONS (1)
  - TRANSIENT ISCHAEMIC ATTACK [None]
